FAERS Safety Report 10187751 (Version 1)
Quarter: 2014Q2

REPORT INFORMATION
  Report Type: Spontaneous
  Country: US (occurrence: US)
  Receive Date: 20140522
  Receipt Date: 20140522
  Transmission Date: 20141212
  Serious: No
  Sender: FDA-Public Use
  Company Number: US-SANOFI-AVENTIS-2013SA087603

PATIENT
  Age: 56 Year
  Sex: Male

DRUGS (1)
  1. LANTUS [Suspect]
     Indication: TYPE 2 DIABETES MELLITUS
     Dosage: TAKEN FROM: 4-5 YEARS AGO. DOSE:15 UNIT(S)
     Route: 051

REACTIONS (4)
  - Visual impairment [Not Recovered/Not Resolved]
  - Blood glucose abnormal [Not Recovered/Not Resolved]
  - Drug ineffective [Unknown]
  - Expired product administered [Unknown]
